FAERS Safety Report 5217674-8 (Version None)
Quarter: 2006Q4

REPORT INFORMATION
  Report Type: 
  Country: None (occurrence: None)
  Receive Date: 20061130
  Receipt Date: 20060803
  Transmission Date: 20070319
  Serious: Yes (Other)
  Sender: FDA-Public Use
  Company Number: US200601003908

PATIENT
  Age: 39 Year
  Sex: Male
  Weight: 136.1 kg

DRUGS (10)
  1. ZYPREXA [Suspect]
     Indication: BIPOLAR DISORDER
     Dosage: 5 MG, DAILY (1/D); ORAL; 10MG, DAILY (1/D); ORAL; 30 MG, DAILY (1/D); ORAL
     Route: 048
     Dates: start: 20020401, end: 20040201
  2. ZYPREXA [Suspect]
     Indication: BIPOLAR DISORDER
     Dosage: 5 MG, DAILY (1/D); ORAL; 10MG, DAILY (1/D); ORAL; 30 MG, DAILY (1/D); ORAL
     Route: 048
     Dates: start: 20020314, end: 20040305
  3. ZYPREXA [Suspect]
     Indication: BIPOLAR DISORDER
     Dosage: 5 MG, DAILY (1/D); ORAL; 10MG, DAILY (1/D); ORAL; 30 MG, DAILY (1/D); ORAL
     Route: 048
     Dates: end: 20040305
  4. HALDOL SOLUTAB [Concomitant]
  5. DEPAKOTE [Concomitant]
  6. WELLBUTRIN [Concomitant]
  7. PAXIL [Concomitant]
  8. EFFEXOR [Concomitant]
  9. TRAZODONE HCL [Concomitant]
  10. HYDROCHLORZIDE (HYDROCHLOROTHIAZIDE) [Concomitant]

REACTIONS (4)
  - DIABETES MELLITUS NON-INSULIN-DEPENDENT [None]
  - METABOLIC DISORDER [None]
  - PRESCRIBED OVERDOSE [None]
  - WEIGHT INCREASED [None]
